FAERS Safety Report 4424235-7 (Version None)
Quarter: 2004Q3

REPORT INFORMATION
  Report Type: 
  Country: None (occurrence: None)
  Receive Date: 20040809
  Receipt Date: 20040728
  Transmission Date: 20050211
  Serious: Yes (Hospitalization)
  Sender: FDA-Public Use
  Company Number: 04P-087-0265660-00

PATIENT
  Age: 75 Year
  Sex: Male

DRUGS (10)
  1. TRICOR [Suspect]
     Indication: HYPERLIPIDAEMIA
     Dosage: 150 MG, 2 IN 1 D, ORAL
     Route: 048
     Dates: start: 20031030, end: 20040601
  2. ISOSORBIDE MONONITRATE [Concomitant]
  3. WARFARIN POTASSIUM [Concomitant]
  4. DILTIAZEM HYDROCHLORIDE [Concomitant]
  5. ASPIRIN [Concomitant]
  6. SENNA LEAF [Concomitant]
  7. INDOMETHACIN [Concomitant]
  8. ECABET MONOSODIUM [Concomitant]
  9. TRIMEBUTINE MALEATE [Concomitant]
  10. FAMOTIDINE [Concomitant]

REACTIONS (5)
  - BACK PAIN [None]
  - HAEMODIALYSIS [None]
  - HYPOAESTHESIA [None]
  - RENAL FAILURE ACUTE [None]
  - RHABDOMYOLYSIS [None]
